FAERS Safety Report 9135973 (Version 1)
Quarter: 2013Q1

REPORT INFORMATION
  Report Type: Spontaneous
  Country: US (occurrence: US)
  Receive Date: 20130219
  Receipt Date: 20130219
  Transmission Date: 20140127
  Serious: Yes (Other)
  Sender: FDA-Public Use
  Company Number: US-BRISTOL-MYERS SQUIBB COMPANY-16470064

PATIENT
  Age: 35 Year
  Sex: Female

DRUGS (5)
  1. ORENCIA [Suspect]
     Indication: RHEUMATOID ARTHRITIS
     Dosage: 3 VIALS, 1/3 OF DOSE WAS RECEIVED
     Route: 042
     Dates: start: 20120124
  2. NEURONTIN [Concomitant]
     Dosage: 1DF =300AM+900 HS
  3. LOPRESSOR [Concomitant]
  4. CYTOTEC [Concomitant]
  5. ARAVA [Concomitant]

REACTIONS (2)
  - Hypersensitivity [Recovering/Resolving]
  - Eye haemorrhage [Recovering/Resolving]
